FAERS Safety Report 6264608-3 (Version None)
Quarter: 2009Q3

REPORT INFORMATION
  Report Type: 
  Country: None (occurrence: None)
  Receive Date: 20090710
  Receipt Date: 20090708
  Transmission Date: 20100115
  Serious: No
  Sender: FDA-Public Use
  Company Number: US-B.I. PHARMACEUTICALS,INC./RIDGEFIELD-2009-BP-08156BP

PATIENT
  Sex: Male

DRUGS (8)
  1. FLOMAX [Suspect]
  2. LISINOPRIL [Concomitant]
  3. X-FORGE [Concomitant]
  4. TRIAMTERENE AND HYDROCHLOROTHIAZIDE [Concomitant]
  5. PLAVIX [Concomitant]
     Indication: BLOOD DISORDER
  6. CRESTOR [Concomitant]
  7. ASEPAN [Concomitant]
  8. VIAGRA [Concomitant]
     Indication: ERECTILE DYSFUNCTION

REACTIONS (3)
  - ERECTILE DYSFUNCTION [None]
  - RHINORRHOEA [None]
  - SEMEN VOLUME DECREASED [None]
